FAERS Safety Report 6525343-7 (Version None)
Quarter: 2009Q4

REPORT INFORMATION
  Report Type: 
  Country: None (occurrence: None)
  Receive Date: 20091228
  Receipt Date: 20091215
  Transmission Date: 20100525
  Serious: Yes (Hospitalization)
  Sender: FDA-Public Use
  Company Number: RENA-1000610

PATIENT
  Age: 79 Year
  Sex: Male

DRUGS (3)
  1. RENAGEL [Suspect]
     Indication: HYPERPHOSPHATAEMIA
     Dosage: 1.5 G, TID, ORAL
     Route: 048
     Dates: end: 20090801
  2. ARGAMATE (CALCIUM POLYSTYRENE SULFONATE) [Suspect]
     Indication: DRUG USE FOR UNKNOWN INDICATION
  3. CALTAN (CALCIUM CARBONATE) [Suspect]
     Indication: DRUG USE FOR UNKNOWN INDICATION

REACTIONS (2)
  - ANAEMIA [None]
  - GASTROINTESTINAL HAEMORRHAGE [None]
